FAERS Safety Report 11574746 (Version 1)
Quarter: 2015Q3

REPORT INFORMATION
  Report Type: Spontaneous
  Country: US (occurrence: None)
  Receive Date: 20150929
  Receipt Date: 20150929
  Transmission Date: 20151125
  Serious: Yes (Hospitalization)
  Sender: FDA-Public Use
  Company Number: None

PATIENT
  Age: 62 Year
  Sex: Female

DRUGS (8)
  1. NEURONTIN [Concomitant]
     Active Substance: GABAPENTIN
  2. PROPRANOLOL [Concomitant]
     Active Substance: PROPRANOLOL\PROPRANOLOL HYDROCHLORIDE
  3. COGENTIN [Concomitant]
     Active Substance: BENZTROPINE MESYLATE
  4. CELEXA [Concomitant]
     Active Substance: CITALOPRAM HYDROBROMIDE
  5. SEROQUEL [Concomitant]
     Active Substance: QUETIAPINE FUMARATE
  6. LAMICTAL [Concomitant]
     Active Substance: LAMOTRIGINE
  7. ATIVAN [Concomitant]
     Active Substance: LORAZEPAM
  8. LAMOTRIGINE 100 MG [Suspect]
     Active Substance: LAMOTRIGINE
     Indication: BIPOLAR DISORDER
     Dosage: 2 PILLS QD
     Route: 048
     Dates: start: 20120319, end: 20120629

REACTIONS (20)
  - Confusional state [None]
  - Disorientation [None]
  - Urinary tract infection [None]
  - Delirium [None]
  - Dysgraphia [None]
  - Stomatitis [None]
  - Dementia Alzheimer^s type [None]
  - Creutzfeldt-Jakob disease [None]
  - Disorganised speech [None]
  - Executive dysfunction [None]
  - Restlessness [None]
  - Anxiety [None]
  - Thinking abnormal [None]
  - Encephalopathy [None]
  - Drug ineffective [None]
  - Memory impairment [None]
  - Cognitive disorder [None]
  - Gait disturbance [None]
  - Hyperreflexia [None]
  - Psoriasis [None]

NARRATIVE: CASE EVENT DATE: 20120605
